APPROVED DRUG PRODUCT: DECITABINE
Active Ingredient: DECITABINE
Strength: 50MG/VIAL
Dosage Form/Route: INJECTABLE;INTRAVENOUS
Application: A214569 | Product #001
Applicant: EUGIA PHARMA SPECIALITIES LTD
Approved: Sep 20, 2021 | RLD: No | RS: No | Type: DISCN